FAERS Safety Report 18263134 (Version 1)
Quarter: 2020Q3

REPORT INFORMATION
  Report Type: Spontaneous
  Country: US (occurrence: US)
  Receive Date: 20200914
  Receipt Date: 20200914
  Transmission Date: 20201103
  Serious: Yes (Hospitalization)
  Sender: FDA-Public Use
  Company Number: US-CADILA HEALTHCARE LIMITED-US-ZYDUS-055457

PATIENT

DRUGS (2)
  1. MORPHINE [Suspect]
     Active Substance: MORPHINE
     Indication: PAIN
     Dosage: 10 MG/ML MORPHINE (500 MG)
     Route: 037
  2. BUPIVACAINE. [Suspect]
     Active Substance: BUPIVACAINE
     Indication: PAIN
     Dosage: 35 MG/ML BUPIVACAINE (1750 MG)
     Route: 065

REACTIONS (13)
  - Respiratory depression [Unknown]
  - Hypotension [Recovering/Resolving]
  - Seizure [Unknown]
  - Tachycardia [Unknown]
  - Hypotonia [Unknown]
  - Condition aggravated [Unknown]
  - Sensory loss [Unknown]
  - Depressed level of consciousness [Unknown]
  - Somnolence [Recovered/Resolved]
  - Psychiatric symptom [Unknown]
  - Hypertension [Unknown]
  - Peripheral sensorimotor neuropathy [Unknown]
  - Toxicity to various agents [Unknown]
